FAERS Safety Report 20212489 (Version 1)
Quarter: 2021Q4

REPORT INFORMATION
  Report Type: Spontaneous
  Country: CN (occurrence: CN)
  Receive Date: 20211221
  Receipt Date: 20211221
  Transmission Date: 20220303
  Serious: Yes (Other)
  Sender: FDA-Public Use
  Company Number: CN-PFIZER INC-202101752300

PATIENT
  Age: 90 Year
  Sex: Male

DRUGS (1)
  1. SOLU-MEDROL [Suspect]
     Active Substance: METHYLPREDNISOLONE SODIUM SUCCINATE
     Indication: Infection
     Dosage: 40 MG, 1X/DAY
     Route: 042
     Dates: start: 20211129, end: 20211129

REACTIONS (4)
  - Hallucination [Recovered/Resolved]
  - Wheezing [Unknown]
  - Rales [Unknown]
  - Off label use [Unknown]

NARRATIVE: CASE EVENT DATE: 20211129
